FAERS Safety Report 8837207 (Version 2)
Quarter: 2015Q3

REPORT INFORMATION
  Report Type: Report from Study
  Country: US (occurrence: US)
  Receive Date: 20121011
  Receipt Date: 20150811
  Transmission Date: 20151125
  Serious: Yes (Death, Hospitalization)
  Sender: FDA-Public Use
  Company Number: US-ROCHE-1125525

PATIENT
  Sex: Female
  Weight: 5.8 kg

DRUGS (8)
  1. NEUPOGEN [Concomitant]
     Active Substance: FILGRASTIM
     Route: 065
  2. POLY VI SOL [Concomitant]
  3. NUTROPIN [Suspect]
     Active Substance: SOMATROPIN
     Indication: AZOTAEMIA
     Route: 058
  4. NUTROPIN [Suspect]
     Active Substance: SOMATROPIN
     Indication: RENAL APLASIA
  5. NUTROPIN [Suspect]
     Active Substance: SOMATROPIN
     Indication: CONGENITAL HYPOTHYROIDISM
  6. NUTROPIN [Suspect]
     Active Substance: SOMATROPIN
     Indication: CHRONIC KIDNEY DISEASE
     Dosage: 0.15 ML DOSE PER INJECTION
     Route: 058
  7. REGLAN [Concomitant]
     Active Substance: METOCLOPRAMIDE HYDROCHLORIDE
  8. FAMOTIDINE. [Concomitant]
     Active Substance: FAMOTIDINE
     Dosage: 40MG/5ML
     Route: 065

REACTIONS (7)
  - Fungal infection [Unknown]
  - Death [Fatal]
  - Anaemia [Unknown]
  - Vomiting [Unknown]
  - Nasopharyngitis [Unknown]
  - Acidosis [Unknown]
  - Catheter site erythema [Recovering/Resolving]
